FAERS Safety Report 7673255-8 (Version None)
Quarter: 2011Q3

REPORT INFORMATION
  Report Type: 
  Country: None (occurrence: None)
  Receive Date: 20110810
  Receipt Date: 20110803
  Transmission Date: 20111222
  Serious: Yes (Other)
  Sender: FDA-Public Use
  Company Number: ES-PFIZER INC-2011178389

PATIENT
  Sex: Male

DRUGS (1)
  1. SOMATROPIN RDNA [Suspect]
     Dosage: 0.6 MG, 1X/DAY
     Route: 058
     Dates: start: 20110728

REACTIONS (4)
  - NERVOUSNESS [None]
  - SLEEP DISORDER [None]
  - ATAXIA [None]
  - TREMOR [None]
